FAERS Safety Report 15938040 (Version 1)
Quarter: 2019Q1

REPORT INFORMATION
  Report Type: Report from Study
  Country: PE (occurrence: PE)
  Receive Date: 20190208
  Receipt Date: 20190208
  Transmission Date: 20190417
  Serious: Yes (Other)
  Sender: FDA-Public Use
  Company Number: PE-JNJFOC-20190201439

PATIENT
  Age: 61 Year
  Sex: Male

DRUGS (1)
  1. SIMPONI [Suspect]
     Active Substance: GOLIMUMAB
     Indication: RHEUMATOID ARTHRITIS
     Route: 058
     Dates: start: 20180412

REACTIONS (2)
  - Cellulitis [Not Recovered/Not Resolved]
  - Arthropod bite [Not Recovered/Not Resolved]

NARRATIVE: CASE EVENT DATE: 201901
